FAERS Safety Report 10547271 (Version 6)
Quarter: 2015Q4

REPORT INFORMATION
  Report Type: Report from Study
  Country: DE (occurrence: DE)
  Receive Date: 20141028
  Receipt Date: 20151117
  Transmission Date: 20160304
  Serious: Yes (Life-Threatening, Hospitalization)
  Sender: FDA-Public Use
  Company Number: DE-ROCHE-1447730

PATIENT
  Age: 61 Year
  Sex: Female
  Weight: 76 kg

DRUGS (17)
  1. CARBOPLATIN. [Suspect]
     Active Substance: CARBOPLATIN
     Indication: OVARIAN CANCER
     Dosage: LAST DOSE PRIOR TO SAE: 01/AUG/2014.LAST DOSE PRIOR TO EVENT REDUCED GENERAL CONDITION ON 25/SEP/201
     Route: 042
     Dates: start: 20140801
  2. CARBOPLATIN. [Suspect]
     Active Substance: CARBOPLATIN
     Route: 042
     Dates: start: 20141023
  3. PSYLLIUM [Concomitant]
     Active Substance: PLANTAGO SEED
     Indication: PAIN
     Route: 048
     Dates: start: 20141012, end: 20141012
  4. VANCOMYCIN [Concomitant]
     Active Substance: VANCOMYCIN
     Route: 042
     Dates: start: 20141012, end: 20141015
  5. NOVALGIN [Concomitant]
     Active Substance: METAMIZOLE SODIUM
     Indication: PAIN
     Route: 048
     Dates: start: 20141012, end: 20141012
  6. GEMCITABINE [Suspect]
     Active Substance: GEMCITABINE\GEMCITABINE HYDROCHLORIDE
     Indication: OVARIAN CANCER
     Dosage: LAST DOSE PRIOR TO SAE: 08/AUG/2014, LAST DOSE PRIOR TO EVENT REDUCED GENERAL CONDITION ON 25/SEP/20
     Route: 042
     Dates: start: 20140801
  7. CARBOPLATIN. [Suspect]
     Active Substance: CARBOPLATIN
     Dosage: ON 06/AUG/2014 RECEIVED LAST DOSE PRIOR TO SAE
     Route: 042
     Dates: start: 20140806
  8. ROCEPHIN [Concomitant]
     Active Substance: CEFTRIAXONE SODIUM
     Indication: INFECTION
     Route: 042
     Dates: start: 20141014, end: 20141022
  9. BEVACIZUMAB [Suspect]
     Active Substance: BEVACIZUMAB
     Indication: OVARIAN CANCER
     Dosage: LAST DOSE PRIOR TO EVENT REDUCED GENERAL CONDITION ON 25/SEP/2014
     Route: 042
     Dates: start: 20140904
  10. GEMCITABINE [Suspect]
     Active Substance: GEMCITABINE\GEMCITABINE HYDROCHLORIDE
     Route: 042
     Dates: start: 20140904, end: 20141016
  11. IBUPROFEN. [Concomitant]
     Active Substance: IBUPROFEN
     Route: 048
     Dates: start: 20141010, end: 20141016
  12. CARBOPLATIN. [Suspect]
     Active Substance: CARBOPLATIN
     Dosage: AUC 3
     Route: 042
     Dates: start: 20140904, end: 20141016
  13. GEMCITABINE [Suspect]
     Active Substance: GEMCITABINE\GEMCITABINE HYDROCHLORIDE
     Route: 042
     Dates: start: 20141023
  14. CEFUROXIME. [Concomitant]
     Active Substance: CEFUROXIME
     Indication: INFECTION
     Route: 048
     Dates: start: 20141011, end: 20141030
  15. PARACETAMOL [Concomitant]
     Active Substance: ACETAMINOPHEN
     Indication: PAIN
     Route: 048
     Dates: start: 20140612, end: 20141015
  16. VANCOMYCIN [Concomitant]
     Active Substance: VANCOMYCIN
     Indication: INFECTION
     Route: 042
     Dates: start: 20141011, end: 20141011
  17. LORMETAZEPAM [Concomitant]
     Active Substance: LORMETAZEPAM
     Indication: INSOMNIA
     Route: 048
     Dates: start: 20141014, end: 20141015

REACTIONS (4)
  - General physical health deterioration [Recovered/Resolved]
  - General physical health deterioration [Recovered/Resolved]
  - Neutropenia [Recovered/Resolved]
  - Pleural effusion [Recovered/Resolved]

NARRATIVE: CASE EVENT DATE: 20140806
